FAERS Safety Report 10415777 (Version 3)
Quarter: 2015Q2

REPORT INFORMATION
  Report Type: Spontaneous
  Country: US (occurrence: US)
  Receive Date: 20140828
  Receipt Date: 20150423
  Transmission Date: 20150821
  Serious: Yes (Hospitalization, Other)
  Sender: FDA-Public Use
  Company Number: US-BAYER-2014-127295

PATIENT
  Age: 24 Year
  Sex: Female
  Weight: 65.31 kg

DRUGS (4)
  1. MIRENA [Suspect]
     Active Substance: LEVONORGESTREL
     Indication: MENORRHAGIA
     Dosage: 20 MCG/24HR, CONT
     Route: 015
     Dates: start: 20110907, end: 20120830
  2. ALLEGRA [Concomitant]
     Active Substance: FEXOFENADINE HYDROCHLORIDE
  3. PENTASA [Concomitant]
     Active Substance: MESALAMINE
  4. ADDERALL [Concomitant]
     Active Substance: AMPHETAMINE ASPARTATE\AMPHETAMINE SULFATE\DEXTROAMPHETAMINE SACCHARATE\DEXTROAMPHETAMINE SULFATE

REACTIONS (13)
  - Injury [None]
  - Depression [None]
  - Pelvic pain [None]
  - Anxiety [None]
  - Pain [None]
  - Device dislocation [None]
  - Diverticulitis [None]
  - Embedded device [None]
  - Abdominal pain lower [None]
  - Device breakage [None]
  - Urinary tract infection [None]
  - Ovarian cyst [None]
  - Emotional distress [None]

NARRATIVE: CASE EVENT DATE: 201205
